FAERS Safety Report 14964863 (Version 2)
Quarter: 2018Q3

REPORT INFORMATION
  Report Type: Spontaneous
  Country: US (occurrence: US)
  Receive Date: 20180601
  Receipt Date: 20180709
  Transmission Date: 20181010
  Serious: Yes (Hospitalization)
  Sender: FDA-Public Use
  Company Number: US-IMPAX LABORATORIES, INC-2018-IPXL-01788

PATIENT
  Age: 71 Year
  Sex: Female
  Weight: 70 kg

DRUGS (4)
  1. RYTARY [Suspect]
     Active Substance: CARBIDOPA\LEVODOPA
     Dosage: 61.25/245MG, TWO CAPSULES FOUR TIMES A DAY AND 48.75/195 MG, ONE CAPSULE FOUR TIMES A DAY
     Route: 048
     Dates: start: 201805, end: 201805
  2. RYTARY [Suspect]
     Active Substance: CARBIDOPA\LEVODOPA
     Indication: PARKINSON^S DISEASE
     Dosage: 1 CAPSULE, 195MG, 2 CAPSULE, 245 MG FOR 3 DAYS
     Route: 048
     Dates: start: 20180508, end: 20180511
  3. RYTARY [Suspect]
     Active Substance: CARBIDOPA\LEVODOPA
     Dosage: 2 CAPSULES OF 245MG AND 2 CAPSULES OF 195 MG, FOUR TIMES DAILY
     Route: 048
     Dates: start: 20180516, end: 20180517
  4. RYTARY [Suspect]
     Active Substance: CARBIDOPA\LEVODOPA
     Dosage: 245MG 3 CAPSULE, UNK
     Route: 048
     Dates: start: 20180511, end: 201805

REACTIONS (3)
  - Neck pain [Not Recovered/Not Resolved]
  - Anxiety [Unknown]
  - Prescribed overdose [Unknown]
